FAERS Safety Report 9807471 (Version 2)
Quarter: 2014Q1

REPORT INFORMATION
  Report Type: Spontaneous
  Country: IT (occurrence: IT)
  Receive Date: 20140110
  Receipt Date: 20140321
  Transmission Date: 20141002
  Serious: Yes (Hospitalization)
  Sender: FDA-Public Use
  Company Number: IT-ELI_LILLY_AND_COMPANY-IT201401001954

PATIENT
  Age: 23 Year
  Sex: Male

DRUGS (9)
  1. OLANZAPINE [Suspect]
     Indication: PRODUCT USED FOR UNKNOWN INDICATION
     Dosage: 5 MG, SINGLE
     Route: 048
     Dates: start: 20131220, end: 20131220
  2. OLANZAPINE [Suspect]
     Dosage: 2.5 MG, UNKNOWN
     Route: 048
  3. LENDORMIN [Suspect]
     Indication: PRODUCT USED FOR UNKNOWN INDICATION
     Dosage: 0.50 MG, UNKNOWN
     Route: 048
     Dates: start: 20131220, end: 20131220
  4. LENDORMIN [Suspect]
     Dosage: 0.25 MG, UNKNOWN
     Route: 048
  5. XANAX [Suspect]
     Indication: PRODUCT USED FOR UNKNOWN INDICATION
     Dosage: 1 MG, SINGLE
     Route: 048
     Dates: start: 20131220, end: 20131220
  6. XANAX [Suspect]
     Dosage: 0.5 MG, UNKNOWN
     Route: 048
  7. EFEXOR [Suspect]
     Indication: PRODUCT USED FOR UNKNOWN INDICATION
     Dosage: 150 MG, SINGLE
     Route: 048
     Dates: start: 20131220, end: 20131220
  8. EFEXOR [Suspect]
     Dosage: 75 MG, UNKNOWN
     Route: 048
  9. ALCOHOL [Suspect]
     Indication: PRODUCT USED FOR UNKNOWN INDICATION
     Dosage: 1 DF, UNKNOWN

REACTIONS (5)
  - Intentional self-injury [Recovering/Resolving]
  - Headache [Recovering/Resolving]
  - Mydriasis [Recovering/Resolving]
  - Drug abuse [Recovering/Resolving]
  - Sopor [Recovering/Resolving]
